FAERS Safety Report 9657905 (Version 4)
Quarter: 2014Q2

REPORT INFORMATION
  Report Type: Report from Study
  Country: BR (occurrence: BR)
  Receive Date: 20131030
  Receipt Date: 20140616
  Transmission Date: 20141212
  Serious: Yes (Death, Hospitalization, Other)
  Sender: FDA-Public Use
  Company Number: BR-009507513-1310BRA012517

PATIENT
  Age: 56 Year
  Sex: Male
  Weight: 103.9 kg

DRUGS (8)
  1. SIMVASTATIN [Suspect]
     Indication: ACUTE CORONARY SYNDROME
     Dosage: 40 MG, UNK
     Route: 048
     Dates: start: 20071024, end: 20130711
  2. AMLODIPINE [Concomitant]
     Dosage: 10 MG, QD
     Route: 048
     Dates: start: 20071021
  3. ENALAPRIL MALEATE [Concomitant]
     Dosage: 40 MG, QD
     Route: 048
     Dates: start: 20120208
  4. ASPIRIN [Concomitant]
     Dosage: 100 MG, QD
     Route: 048
     Dates: start: 20071018
  5. ATENOLOL [Concomitant]
     Dosage: 100 MG, QD
     Route: 048
     Dates: start: 20100211
  6. METHYLDOPA [Concomitant]
     Dosage: 500 MG, QD
     Route: 048
     Dates: start: 20101024
  7. HYDROCHLOROTHIAZIDE [Concomitant]
     Dosage: 25 MG, QD
     Route: 048
     Dates: start: 20100211
  8. METFORMIN [Concomitant]
     Dosage: 850 MG, QD
     Route: 048
     Dates: start: 20120612

REACTIONS (2)
  - Cholestasis [Fatal]
  - Cholangiocarcinoma [Not Recovered/Not Resolved]
